FAERS Safety Report 5506933-7 (Version None)
Quarter: 2007Q4

REPORT INFORMATION
  Report Type: 
  Country: None (occurrence: None)
  Receive Date: 20071105
  Receipt Date: 20071024
  Transmission Date: 20080405
  Serious: No
  Sender: FDA-Public Use
  Company Number: JP-PFIZER INC-2007086347

PATIENT
  Sex: Female

DRUGS (5)
  1. SALAZOPYRIN [Suspect]
     Indication: COLITIS ULCERATIVE
     Route: 048
     Dates: start: 20070824, end: 20070907
  2. MUCOSOLVAN [Concomitant]
     Route: 048
  3. DICLOFENAC SODIUM [Concomitant]
     Route: 048
  4. PREDONINE [Concomitant]
  5. SOLANAX [Concomitant]
     Route: 048

REACTIONS (1)
  - NO ADVERSE REACTION [None]
